FAERS Safety Report 8262369-X (Version None)
Quarter: 2012Q2

REPORT INFORMATION
  Report Type: 
  Country: None (occurrence: None)
  Receive Date: 20120402
  Receipt Date: 20120321
  Transmission Date: 20120825
  Serious: Yes (Hospitalization, Other)
  Sender: FDA-Public Use
  Company Number: ADR-2012-00369

PATIENT
  Age: 6 Year
  Sex: Male

DRUGS (1)
  1. BACLOFEN [Suspect]
     Dosage: 140 MG/DAY

REACTIONS (9)
  - IMPLANT SITE INFECTION [None]
  - BLISTER [None]
  - WOUND [None]
  - MUSCLE SPASTICITY [None]
  - PROCEDURAL COMPLICATION [None]
  - IMPLANT SITE REACTION [None]
  - STAPHYLOCOCCAL INFECTION [None]
  - MEDICAL DEVICE COMPLICATION [None]
  - BACTERIAL TEST POSITIVE [None]
